FAERS Safety Report 20208095 (Version 2)
Quarter: 2022Q1

REPORT INFORMATION
  Report Type: Report from Study
  Country: CA (occurrence: CA)
  Receive Date: 20211220
  Receipt Date: 20220114
  Transmission Date: 20220424
  Serious: Yes (Other)
  Sender: FDA-Public Use
  Company Number: CA-GLAXOSMITHKLINE-CA2021217986

PATIENT
  Age: 66 Year
  Sex: Female

DRUGS (6)
  1. MEPOLIZUMAB [Suspect]
     Active Substance: MEPOLIZUMAB
     Indication: Asthma
     Dosage: 100 MG, Z, EVERY 4 WEEKS
     Route: 058
     Dates: start: 20190712
  2. UNSPECIFIED INGREDIENT [Concomitant]
     Active Substance: UNSPECIFIED INGREDIENT
     Indication: Product used for unknown indication
     Dosage: UNK
  3. VENTOLIN [Concomitant]
     Active Substance: ALBUTEROL SULFATE
     Indication: Product used for unknown indication
     Dosage: UNK
  4. SYMBICORT [Concomitant]
     Active Substance: BUDESONIDE\FORMOTEROL FUMARATE DIHYDRATE
     Indication: Product used for unknown indication
     Dosage: UNK
  5. ALVESCO [Concomitant]
     Active Substance: CICLESONIDE
     Indication: Product used for unknown indication
     Dosage: UNK
  6. XOLAIR [Concomitant]
     Active Substance: OMALIZUMAB
     Indication: Product used for unknown indication
     Dosage: UNK

REACTIONS (7)
  - Liver injury [Unknown]
  - Hepatic steatosis [Unknown]
  - Dyspnoea [Unknown]
  - Chest discomfort [Unknown]
  - Malaise [Unknown]
  - Product dose omission issue [Unknown]
  - Inappropriate schedule of product administration [Unknown]

NARRATIVE: CASE EVENT DATE: 20211101
